FAERS Safety Report 5160271-3 (Version None)
Quarter: 2006Q4

REPORT INFORMATION
  Report Type: 
  Country: None (occurrence: None)
  Receive Date: 20061120
  Receipt Date: 20061110
  Transmission Date: 20070319
  Serious: Yes (Other)
  Sender: FDA-Public Use
  Company Number: 2006SP006161

PATIENT
  Sex: Male

DRUGS (1)
  1. CLARITIN [Suspect]
     Dosage: QD

REACTIONS (1)
  - PLATELET COUNT DECREASED [None]
